FAERS Safety Report 5536491-2 (Version None)
Quarter: 2007Q4

REPORT INFORMATION
  Report Type: 
  Country: None (occurrence: None)
  Receive Date: 20071206
  Receipt Date: 20071023
  Transmission Date: 20080405
  Serious: Yes (Hospitalization)
  Sender: FDA-Public Use
  Company Number: US-AMGEN-STX241588

PATIENT
  Sex: Female
  Weight: 93.5 kg

DRUGS (18)
  1. ENBREL [Suspect]
     Indication: PSORIATIC ARTHROPATHY
     Route: 058
     Dates: start: 20051001
  2. ENBREL [Suspect]
     Indication: PSORIASIS
  3. METHOTREXATE [Concomitant]
     Route: 048
     Dates: start: 20060101
  4. PREDNISONE TAB [Concomitant]
     Route: 065
  5. XANAX [Concomitant]
     Route: 065
  6. METOPROLOL [Concomitant]
     Route: 065
  7. COZAAR [Concomitant]
     Route: 065
  8. ACIPHEX [Concomitant]
     Route: 065
  9. POTASSIUM CHLORIDE [Concomitant]
     Route: 065
  10. LORTAB [Concomitant]
     Route: 065
  11. LANTUS [Concomitant]
     Route: 065
  12. VITAMIN D [Concomitant]
     Route: 065
  13. FOLIC ACID [Concomitant]
     Route: 065
  14. FISH OIL [Concomitant]
     Route: 065
  15. MONISTAT [Concomitant]
  16. NOVOLOG [Concomitant]
     Route: 065
  17. OMEPRAZOLE [Concomitant]
     Route: 065
  18. SIMVASTATIN [Concomitant]
     Route: 065

REACTIONS (15)
  - ARTHRALGIA [None]
  - BACK PAIN [None]
  - BLOOD GLUCOSE ABNORMAL [None]
  - EYE PAIN [None]
  - GASTROENTERITIS [None]
  - GUTTATE PSORIASIS [None]
  - INJECTION SITE REACTION [None]
  - PAIN IN EXTREMITY [None]
  - PRURITUS [None]
  - PSORIASIS [None]
  - PSORIATIC ARTHROPATHY [None]
  - SLEEP DISORDER [None]
  - TREMOR [None]
  - UMBILICAL HERNIA [None]
  - VULVOVAGINAL MYCOTIC INFECTION [None]
